FAERS Safety Report 9766585 (Version 1)
Quarter: 2013Q4

REPORT INFORMATION
  Report Type: Spontaneous
  Country: US (occurrence: US)
  Receive Date: 20131217
  Receipt Date: 20131217
  Transmission Date: 20140711
  Serious: No
  Sender: FDA-Public Use
  Company Number: US-BIOGENIDEC-2013BI119069

PATIENT
  Age: 50 Year
  Sex: Female

DRUGS (8)
  1. TECFIDERA [Suspect]
     Indication: MULTIPLE SCLEROSIS
     Route: 048
     Dates: start: 20131029
  2. AZITHROMYCIN [Concomitant]
  3. CLONAZEPAM [Concomitant]
  4. DOXYCYCLINE HYCLATE [Concomitant]
  5. GABAPENTIN [Concomitant]
  6. METHADONE [Concomitant]
  7. REQUIP [Concomitant]
  8. RHINOCORT AQUA [Concomitant]

REACTIONS (5)
  - Pyrexia [Unknown]
  - Chills [Unknown]
  - Decreased appetite [Unknown]
  - Abdominal discomfort [Unknown]
  - Vomiting [Unknown]
